FAERS Safety Report 11347714 (Version 1)
Quarter: 2015Q3

REPORT INFORMATION
  Report Type: Spontaneous
  Country: US (occurrence: US)
  Receive Date: 20150806
  Receipt Date: 20150806
  Transmission Date: 20151125
  Serious: Yes (Hospitalization, Other)
  Sender: FDA-Public Use
  Company Number: US-TEVA-583299USA

PATIENT
  Age: 46 Year
  Sex: Female

DRUGS (13)
  1. AROMASIN [Concomitant]
     Active Substance: EXEMESTANE
     Dosage: 25 MILLIGRAM DAILY;
     Route: 048
  2. CLONAZEPAM. [Suspect]
     Active Substance: CLONAZEPAM
     Dosage: PRN
     Dates: start: 20120306
  3. VITAMIN B 1-6-12 [Concomitant]
     Active Substance: CYANOCOBALAMIN\PYRIDOXINE\THIAMINE
  4. OXYCODONE [Concomitant]
     Active Substance: OXYCODONE
     Dosage: PRN
  5. MIRALAX [Concomitant]
     Active Substance: POLYETHYLENE GLYCOL 3350
     Route: 048
  6. POTASSIUM CHLORIDE. [Concomitant]
     Active Substance: POTASSIUM CHLORIDE
     Route: 048
  7. ASPIRIN. [Concomitant]
     Active Substance: ASPIRIN
     Dosage: 81 MILLIGRAM DAILY;
     Route: 048
  8. CLINDAMYCIN [Concomitant]
     Active Substance: CLINDAMYCIN\CLINDAMYCIN PHOSPHATE
     Dosage: 900 MILLIGRAM DAILY;
     Route: 048
  9. CARVEDILOL. [Suspect]
     Active Substance: CARVEDILOL
     Dosage: 12.5 MILLIGRAM DAILY;
     Route: 048
     Dates: start: 20111102
  10. DIOVAN [Concomitant]
     Active Substance: VALSARTAN
     Dosage: 40 MILLIGRAM DAILY;
     Route: 048
  11. MORPHINE [Concomitant]
     Active Substance: MORPHINE
     Dosage: PRN
  12. VITAMIN D3 [Concomitant]
     Active Substance: CHOLECALCIFEROL
  13. FOLIC ACID W/VITAMIN B [Concomitant]
     Route: 048

REACTIONS (28)
  - Arthropathy [Unknown]
  - Nausea [Unknown]
  - Muscle spasms [Unknown]
  - Bone pain [Recovered/Resolved]
  - Back disorder [Not Recovered/Not Resolved]
  - Vomiting [Unknown]
  - Weight decreased [Unknown]
  - Depression [Not Recovered/Not Resolved]
  - Chronic kidney disease [Unknown]
  - Haematoma [Unknown]
  - Overdose [Unknown]
  - Arthralgia [Unknown]
  - Back pain [Unknown]
  - Neck pain [Unknown]
  - Breast cellulitis [Recovered/Resolved]
  - Oesophagitis [Recovering/Resolving]
  - Chest pain [Recovering/Resolving]
  - Lymphadenopathy [Unknown]
  - Decreased appetite [Unknown]
  - Fibrin D dimer increased [Unknown]
  - Constipation [Unknown]
  - Pulmonary embolism [Recovering/Resolving]
  - Anxiety [Not Recovered/Not Resolved]
  - Fall [Unknown]
  - Dysarthria [Not Recovered/Not Resolved]
  - Pain [Unknown]
  - Diarrhoea [Unknown]
  - Blood homocysteine increased [Unknown]

NARRATIVE: CASE EVENT DATE: 20121009
